FAERS Safety Report 25041529 (Version 1)
Quarter: 2025Q1

REPORT INFORMATION
  Report Type: Spontaneous
  Country: ES (occurrence: ES)
  Receive Date: 20250305
  Receipt Date: 20250305
  Transmission Date: 20250409
  Serious: Yes (Other)
  Sender: ALEXION PHARMACEUTICALS
  Company Number: None

PATIENT
  Age: 58 Year

DRUGS (1)
  1. ROSUVASTATIN [Suspect]
     Active Substance: ROSUVASTATIN
     Indication: Dyslipidaemia
     Dosage: 5 MILLIGRAM, QD (1/DAY)
     Route: 065

REACTIONS (5)
  - Erythema [Unknown]
  - Face oedema [Unknown]
  - Pruritus [Unknown]
  - Urticaria [Unknown]
  - Malaise [Unknown]
